FAERS Safety Report 24270529 (Version 3)
Quarter: 2024Q4

REPORT INFORMATION
  Report Type: Spontaneous
  Country: JP (occurrence: JP)
  Receive Date: 20240831
  Receipt Date: 20241115
  Transmission Date: 20250115
  Serious: Yes (Life-Threatening, Other)
  Sender: ABBVIE
  Company Number: JP-TAKEDA-2024TJP012482

PATIENT
  Age: 43 Year
  Sex: Female

DRUGS (1)
  1. LEUPROLIDE ACETATE [Suspect]
     Active Substance: LEUPROLIDE ACETATE
     Indication: Breast cancer
     Dosage: FORM STRENGTH:22.5MG?UNK
     Route: 058

REACTIONS (3)
  - Cardiac arrest [Unknown]
  - Ventricular fibrillation [Unknown]
  - Long QT syndrome [Unknown]
